FAERS Safety Report 6875892-7 (Version None)
Quarter: 2010Q3

REPORT INFORMATION
  Report Type: 
  Country: None (occurrence: None)
  Receive Date: 20100727
  Receipt Date: 20100716
  Transmission Date: 20110219
  Serious: Yes (Hospitalization, Disabling, Other)
  Sender: FDA-Public Use
  Company Number: ES-ASTRAZENECA-2010SE30151

PATIENT
  Age: 61 Year
  Sex: Female
  Weight: 67.9 kg

DRUGS (6)
  1. SYMBICORT [Suspect]
     Indication: ASTHMA
     Dosage: 320 UG DAILY
     Route: 055
     Dates: start: 20100315
  2. FOSAVANCE 2800 [Suspect]
     Indication: BONE DENSITY DECREASED
     Route: 065
     Dates: start: 20091020
  3. BLINDED THERAPY (TANEZUMAB/PLACEBO) [Suspect]
     Indication: PAIN
     Dosage: EVERY EIGHT WEEKS
     Route: 042
     Dates: start: 20091001, end: 20100318
  4. INVESTIGATIONAL DRUG (NAPROXEN/PLACEBO) [Suspect]
     Indication: OSTEOARTHRITIS
     Route: 048
     Dates: start: 20091001, end: 20100514
  5. PARACETAMOL [Concomitant]
     Indication: PAIN MANAGEMENT
     Dates: end: 20100514
  6. OLMESARTAN MEDOXOMIL [Concomitant]
     Dates: start: 20091020

REACTIONS (2)
  - ANKLE FRACTURE [None]
  - OSTEONECROSIS [None]
